FAERS Safety Report 6267121-2 (Version None)
Quarter: 2009Q3

REPORT INFORMATION
  Report Type: 
  Country: None (occurrence: None)
  Receive Date: 20090714
  Receipt Date: 20090708
  Transmission Date: 20100115
  Serious: Yes (Life-Threatening)
  Sender: FDA-Public Use
  Company Number: JP-BRISTOL-MYERS SQUIBB COMPANY-14697452

PATIENT
  Age: 48 Year
  Sex: Male

DRUGS (6)
  1. REYATAZ [Suspect]
     Indication: HIV INFECTION
     Route: 048
     Dates: end: 20090406
  2. TENOFOVIR DISOPROXIL FUMARATE [Suspect]
     Indication: HIV INFECTION
     Route: 048
     Dates: end: 20090406
  3. EPIVIR [Suspect]
     Indication: HIV INFECTION
     Route: 048
     Dates: end: 20090406
  4. NORVIR [Suspect]
     Indication: HIV INFECTION
     Dosage: NORVIR SOFT
     Route: 048
     Dates: end: 20090406
  5. CISPLATIN [Concomitant]
     Indication: LUNG ADENOCARCINOMA
     Dosage: RECEIVED 4 COURSE
     Dates: start: 20080408, end: 20080709
  6. GEMZAR [Concomitant]
     Indication: LUNG ADENOCARCINOMA
     Dosage: RECEIVED 4 COURSE
     Dates: start: 20080408, end: 20080709

REACTIONS (2)
  - CEREBRAL HAEMORRHAGE [None]
  - SUBDURAL HAEMATOMA [None]
